FAERS Safety Report 10334236 (Version 1)
Quarter: 2014Q3

REPORT INFORMATION
  Report Type: Spontaneous
  Country: CN (occurrence: CN)
  Receive Date: 20140723
  Receipt Date: 20140723
  Transmission Date: 20150326
  Serious: Yes (Other)
  Sender: FDA-Public Use
  Company Number: CN-BAYER-2014-109646

PATIENT
  Sex: Female

DRUGS (1)
  1. YASMIN [Suspect]
     Active Substance: DROSPIRENONE\ETHINYL ESTRADIOL
     Dosage: UNK
     Route: 048
     Dates: end: 20140717

REACTIONS (3)
  - Abnormal withdrawal bleeding [None]
  - Incorrect drug administration duration [None]
  - Respiratory tract infection [None]

NARRATIVE: CASE EVENT DATE: 2014
